FAERS Safety Report 5660123-6 (Version None)
Quarter: 2008Q1

REPORT INFORMATION
  Report Type: 
  Country: None (occurrence: None)
  Receive Date: 20080311
  Receipt Date: 20070919
  Transmission Date: 20080703
  Serious: No
  Sender: FDA-Public Use
  Company Number: US-BAYER-200713035BCC

PATIENT
  Age: 56 Year
  Sex: Female
  Weight: 99 kg

DRUGS (2)
  1. ALEVE [Suspect]
     Indication: BONE PAIN
     Dosage: UNIT DOSE: 220 MG
     Route: 048
     Dates: start: 20070901, end: 20070901
  2. ALEVE [Suspect]
     Route: 048
     Dates: start: 20070918

REACTIONS (2)
  - ABNORMAL DREAMS [None]
  - STOMACH DISCOMFORT [None]
